FAERS Safety Report 5840775-8 (Version None)
Quarter: 2008Q3

REPORT INFORMATION
  Report Type: 
  Country: None (occurrence: None)
  Receive Date: 20080730
  Receipt Date: 20080701
  Transmission Date: 20090109
  Serious: Yes (Other)
  Sender: FDA-Public Use
  Company Number: PHEH2008US04375

PATIENT
  Age: 82 Year
  Sex: Female
  Weight: 59.9 kg

DRUGS (4)
  1. TEKTURNA [Suspect]
     Indication: HYPERTENSION
     Dosage: 150 MG, BID; 300 MG, QD, ORAL
     Route: 048
     Dates: start: 20080403
  2. TEKTURNA [Suspect]
     Indication: HYPERTENSION
     Dosage: 150 MG, BID; 300 MG, QD, ORAL
     Route: 048
     Dates: start: 20080430
  3. DIOVAN [Suspect]
     Indication: HYPERTENSION
     Dosage: 160 MG, BID; 320 MG, QD, ORAL
     Route: 048
     Dates: end: 20080403
  4. DIOVAN [Suspect]
     Indication: HYPERTENSION
     Dosage: 160 MG, BID; 320 MG, QD, ORAL
     Route: 048
     Dates: start: 20080403

REACTIONS (6)
  - ALOPECIA [None]
  - BLOOD PRESSURE INADEQUATELY CONTROLLED [None]
  - FLATULENCE [None]
  - OEDEMA PERIPHERAL [None]
  - POLLAKIURIA [None]
  - URINE OUTPUT INCREASED [None]
